FAERS Safety Report 10356872 (Version 3)
Quarter: 2015Q3

REPORT INFORMATION
  Report Type: Spontaneous
  Country: US (occurrence: US)
  Receive Date: 20140801
  Receipt Date: 20150902
  Transmission Date: 20151125
  Serious: Yes (Other)
  Sender: FDA-Public Use
  Company Number: PHEH2014US015137

PATIENT
  Age: 53 Year
  Sex: Female
  Weight: 89.8 kg

DRUGS (4)
  1. HERCEPTIN [Concomitant]
     Active Substance: TRASTUZUMAB
     Indication: BREAST CANCER
     Dosage: 3 WEEKS
     Route: 042
     Dates: start: 20120911
  2. ZOMETA [Suspect]
     Active Substance: ZOLEDRONIC ACID
     Indication: METASTASES TO BONE
     Dosage: 4 MG, EVERY 4 WEEKS
     Route: 042
     Dates: start: 20090218, end: 20110816
  3. KADCYLA [Concomitant]
     Active Substance: ADO-TRASTUZUMAB EMTANSINE
     Indication: BREAST CANCER
     Dosage: 3 WEEKS
     Route: 042
     Dates: start: 20140326, end: 20140507
  4. ZOMETA [Suspect]
     Active Substance: ZOLEDRONIC ACID
     Dosage: 4 MG, 3 WEEKS
     Route: 042
     Dates: start: 20120911, end: 20130521

REACTIONS (7)
  - Sinusitis [Unknown]
  - Tooth infection [Unknown]
  - Gingivitis [Unknown]
  - Pain in jaw [Unknown]
  - Osteonecrosis of jaw [Recovered/Resolved with Sequelae]
  - Bone cancer [Unknown]
  - Pain [Unknown]

NARRATIVE: CASE EVENT DATE: 20110816
